FAERS Safety Report 13303323 (Version 1)
Quarter: 2017Q1

REPORT INFORMATION
  Report Type: Spontaneous
  Country: US (occurrence: US)
  Receive Date: 20170307
  Receipt Date: 20170307
  Transmission Date: 20170428
  Serious: No
  Sender: FDA-Public Use
  Company Number: US-TEVA-741351ACC

PATIENT
  Sex: Female

DRUGS (2)
  1. PRAMIPEXOLE. [Suspect]
     Active Substance: PRAMIPEXOLE
  2. ETODOLAC. [Suspect]
     Active Substance: ETODOLAC

REACTIONS (1)
  - Drug intolerance [Unknown]
